FAERS Safety Report 6772397-9 (Version None)
Quarter: 2010Q2

REPORT INFORMATION
  Report Type: 
  Country: None (occurrence: None)
  Receive Date: 20100616
  Receipt Date: 20090603
  Transmission Date: 20101027
  Serious: No
  Sender: FDA-Public Use
  Company Number: US-ASTRAZENECA-2009UW14086

PATIENT
  Age: 19451 Day
  Sex: Female
  Weight: 79.4 kg

DRUGS (3)
  1. PULMICORT FLEXHALER [Suspect]
     Indication: ASTHMA
     Route: 055
     Dates: start: 20090531
  2. ATENOLOL [Suspect]
     Indication: HYPERTENSION
     Route: 048
  3. HRT [Concomitant]

REACTIONS (2)
  - INCREASED UPPER AIRWAY SECRETION [None]
  - NASAL CONGESTION [None]
